FAERS Safety Report 9380285 (Version 1)
Quarter: 2013Q3

REPORT INFORMATION
  Report Type: Report from Study
  Country: US (occurrence: US)
  Receive Date: 20130702
  Receipt Date: 20130702
  Transmission Date: 20140515
  Serious: Yes (Other)
  Sender: FDA-Public Use
  Company Number: US-BAYER-2013-059059

PATIENT
  Age: 61 Year
  Sex: Female

DRUGS (10)
  1. BETASERON [Suspect]
     Indication: MULTIPLE SCLEROSIS
     Dosage: 8 MIU, QOD
     Route: 058
     Dates: start: 20120406, end: 20130510
  2. AMPYRA [Suspect]
     Indication: GAIT DISTURBANCE
     Dosage: 1 DF, DAILY
     Dates: start: 20120604
  3. AMPYRA [Suspect]
     Indication: MULTIPLE SCLEROSIS
  4. ADVIL [Concomitant]
  5. BACLOFEN [Concomitant]
     Indication: MUSCLE SPASTICITY
     Dosage: 10 MG, BID
     Route: 048
  6. PRIMIDONE [Concomitant]
     Indication: TREMOR
     Dosage: DAILY DOSE 20 MG
     Route: 048
  7. PROPRANOLOL [Concomitant]
     Indication: TREMOR
     Dosage: 40 MG, TID
  8. ALEVE TABLET [Concomitant]
  9. TOPAMAX [Concomitant]
     Indication: TREMOR
     Dosage: 30 MG, BID
     Route: 048
     Dates: start: 2003
  10. ALPRAZOLAM [Concomitant]
     Indication: ANXIETY

REACTIONS (5)
  - Hepatic enzyme increased [Recovering/Resolving]
  - Muscular weakness [Not Recovered/Not Resolved]
  - Blood alkaline phosphatase increased [Not Recovered/Not Resolved]
  - Multiple sclerosis [Not Recovered/Not Resolved]
  - Bile duct stone [None]
